FAERS Safety Report 19930939 (Version 1)
Quarter: 2021Q4

REPORT INFORMATION
  Report Type: Other
  Country: IE (occurrence: IE)
  Receive Date: 20211007
  Receipt Date: 20211007
  Transmission Date: 20220303
  Serious: Yes (Hospitalization)
  Sender: FDA-Public Use
  Company Number: IE-DEXPHARM-20211655

PATIENT
  Age: 34 Year
  Sex: Female

DRUGS (5)
  1. OMEPRAZOLE [Interacting]
     Active Substance: OMEPRAZOLE
  2. CALCIUM GLUCONATE [Concomitant]
     Active Substance: CALCIUM GLUCONATE
     Route: 050
  3. CALCIUM CARBONATE [Interacting]
     Active Substance: CALCIUM CARBONATE
     Route: 050
  4. alfacalciferol [Concomitant]
     Route: 050
  5. CALCIUM CITRATE [Concomitant]
     Active Substance: CALCIUM CITRATE
     Route: 050

REACTIONS (2)
  - Drug interaction [Recovered/Resolved]
  - Malabsorption [Recovered/Resolved]
